FAERS Safety Report 10917096 (Version 1)
Quarter: 2015Q1

REPORT INFORMATION
  Report Type: Spontaneous
  Country: US (occurrence: None)
  Receive Date: 20150312
  Receipt Date: 20150312
  Transmission Date: 20150721
  Serious: Yes (Congenital Anomaly)
  Sender: FDA-Public Use
  Company Number: None

PATIENT
  Age: 30 Year
  Sex: Female
  Weight: 104.33 kg

DRUGS (1)
  1. PHENERGAN [Suspect]
     Active Substance: PROMETHAZINE HYDROCHLORIDE
     Indication: VOMITING IN PREGNANCY
     Dosage: 1 TABLE PO Q4-6HR PM
     Route: 048
     Dates: start: 20100318, end: 20100621

REACTIONS (2)
  - Maternal drugs affecting foetus [None]
  - Cleft palate [None]

NARRATIVE: CASE EVENT DATE: 20100828
